FAERS Safety Report 12509214 (Version 1)
Quarter: 2016Q2

REPORT INFORMATION
  Report Type: Spontaneous
  Country: US (occurrence: US)
  Receive Date: 20160629
  Receipt Date: 20160629
  Transmission Date: 20160815
  Serious: Yes (Other)
  Sender: FDA-Public Use
  Company Number: US-BAXTER-2016BAX032891

PATIENT
  Age: 80 Year
  Sex: Female
  Weight: 72.64 kg

DRUGS (23)
  1. ARIMIDEX [Suspect]
     Active Substance: ANASTROZOLE
     Indication: CANCER HORMONAL THERAPY
     Route: 065
     Dates: start: 201108
  2. ANASTROZOLE ACCORD [Suspect]
     Active Substance: ANASTROZOLE
     Indication: BREAST CANCER
     Route: 065
  3. FASLODEX [Suspect]
     Active Substance: FULVESTRANT
     Indication: BREAST CANCER METASTATIC
     Dosage: FOR 3 DOSES (2 CYCLES)
     Route: 030
     Dates: start: 201603
  4. POTASSIUM [Concomitant]
     Active Substance: POTASSIUM
     Indication: PRODUCT USED FOR UNKNOWN INDICATION
     Route: 065
  5. FASLODEX [Suspect]
     Active Substance: FULVESTRANT
     Dosage: CYCLICAL, CYCLE 3 D1
     Route: 030
     Dates: start: 20160506
  6. CARVEDILOL. [Concomitant]
     Active Substance: CARVEDILOL
     Indication: PRODUCT USED FOR UNKNOWN INDICATION
     Route: 065
  7. TAXOTERE [Suspect]
     Active Substance: DOCETAXEL
     Indication: BREAST CANCER
     Dosage: 4 CYCLES ADJUVANT CHEMOTHERAPY
     Route: 065
     Dates: start: 20110217
  8. IBRANCE [Suspect]
     Active Substance: PALBOCICLIB
     Indication: BREAST CANCER METASTATIC
     Dosage: D1-21 Q4 WEEKS, 2 CYCLES
     Route: 048
     Dates: start: 201603
  9. OMEGA 3 [Concomitant]
     Active Substance: OMEGA-3 FATTY ACIDS
     Indication: PRODUCT USED FOR UNKNOWN INDICATION
     Dosage: 350 MG-400 MG
     Route: 065
  10. CYANOCOBALAMIN. [Concomitant]
     Active Substance: CYANOCOBALAMIN
     Indication: PRODUCT USED FOR UNKNOWN INDICATION
     Dosage: 1000 MCG/ML
     Route: 065
  11. BENAZEPRIL [Concomitant]
     Active Substance: BENAZEPRIL HYDROCHLORIDE
     Indication: PRODUCT USED FOR UNKNOWN INDICATION
     Dosage: SOLC
     Route: 065
  12. ANASTROZOLE TEVA [Suspect]
     Active Substance: ANASTROZOLE
     Indication: BREAST CANCER
     Route: 065
  13. PROCHLORPERAZINE MALEATE. [Concomitant]
     Active Substance: PROCHLORPERAZINE MALEATE
     Indication: PRODUCT USED FOR UNKNOWN INDICATION
     Route: 065
  14. HYDROCHLOROTHIAZIDE. [Concomitant]
     Active Substance: HYDROCHLOROTHIAZIDE
     Indication: PRODUCT USED FOR UNKNOWN INDICATION
     Route: 065
  15. GLIPIZIDE. [Concomitant]
     Active Substance: GLIPIZIDE
     Indication: PRODUCT USED FOR UNKNOWN INDICATION
     Route: 065
  16. CYCLOPHOSPHAMIDE FOR INJECTION, USP [Suspect]
     Active Substance: CYCLOPHOSPHAMIDE
     Indication: BREAST CANCER
     Dosage: 4 CYCLES ADJUVANT CHEMOTHERAPY
     Route: 065
     Dates: start: 20110217
  17. ARIMIDEX [Suspect]
     Active Substance: ANASTROZOLE
     Indication: BREAST CANCER
  18. TYLENOL [Concomitant]
     Active Substance: ACETAMINOPHEN
     Indication: PRODUCT USED FOR UNKNOWN INDICATION
     Route: 065
  19. OCUVITE [Concomitant]
     Active Substance: VITAMINS
     Indication: PRODUCT USED FOR UNKNOWN INDICATION
     Dosage: 150 MG- 30 UNITS
     Route: 065
  20. VITAMIN D3 [Concomitant]
     Active Substance: CHOLECALCIFEROL
     Indication: PRODUCT USED FOR UNKNOWN INDICATION
     Route: 065
  21. OCUVITE [Concomitant]
     Active Substance: VITAMINS
     Dosage: 5 MG-150 MG
     Route: 065
  22. BENAZEPRIL [Concomitant]
     Active Substance: BENAZEPRIL HYDROCHLORIDE
     Route: 065
  23. BENADRYL [Concomitant]
     Active Substance: DIPHENHYDRAMINE HYDROCHLORIDE
     Indication: PRODUCT USED FOR UNKNOWN INDICATION
     Route: 065

REACTIONS (19)
  - Pollakiuria [Unknown]
  - Hypoaesthesia [Recovering/Resolving]
  - Hypertension [Unknown]
  - Post procedural hypothyroidism [Unknown]
  - Pulmonary mass [Unknown]
  - Musculoskeletal stiffness [Unknown]
  - Asthenia [Unknown]
  - Pain [Recovered/Resolved]
  - Type 2 diabetes mellitus [Unknown]
  - Folate deficiency [Unknown]
  - Breast cancer metastatic [Unknown]
  - Hiatus hernia [Unknown]
  - Paraesthesia [Recovering/Resolving]
  - Amnesia [Unknown]
  - Muscular weakness [Recovering/Resolving]
  - Febrile neutropenia [Unknown]
  - Urinary incontinence [Unknown]
  - Discomfort [Unknown]
  - Dysuria [Unknown]

NARRATIVE: CASE EVENT DATE: 201602
